FAERS Safety Report 17019672 (Version 1)
Quarter: 2019Q4

REPORT INFORMATION
  Report Type: Report from Study
  Country: US (occurrence: US)
  Receive Date: 20191112
  Receipt Date: 20191112
  Transmission Date: 20200122
  Serious: Yes (Other)
  Sender: FDA-Public Use
  Company Number: US-BTG-201900174

PATIENT
  Age: 55 Year
  Sex: Male

DRUGS (4)
  1. ANAVIP [Suspect]
     Active Substance: PIT VIPER (CROTALINAE) IMMUNE GLOBULIN ANTIVENIN (EQUINE)
     Indication: SNAKE BITE
     Dosage: 10 VIALS (8 HOURS AFTER THE SNAKE BITE)
     Route: 065
  2. CROFAB [Suspect]
     Active Substance: CROTALIDAE POLYVALENT IMMUNE FAB (OVINE)
     Indication: SNAKE BITE
     Dosage: 6 VIALS (2.5 HOURS AFTER THE SNAKE BITE)
     Route: 065
  3. ANAVIP [Suspect]
     Active Substance: PIT VIPER (CROTALINAE) IMMUNE GLOBULIN ANTIVENIN (EQUINE)
     Indication: SNAKE BITE
     Dosage: 10 VIALS (5.5 HOURS AFTER THE SNAKE BITE)
     Route: 065
  4. ANAVIP [Suspect]
     Active Substance: PIT VIPER (CROTALINAE) IMMUNE GLOBULIN ANTIVENIN (EQUINE)
     Indication: SNAKE BITE
     Dosage: 10 VIALS (11 HOURS AFTER THE SNAKE BITE)
     Route: 065

REACTIONS (8)
  - Documented hypersensitivity to administered product [Unknown]
  - Angioedema [Recovered/Resolved]
  - Thrombocytopenia [Recovered/Resolved]
  - Rash [Recovered/Resolved]
  - Skin graft [Recovered/Resolved]
  - Respiration abnormal [Recovered/Resolved]
  - Fasciotomy [Recovered/Resolved]
  - Hyperhidrosis [Recovered/Resolved]
